FAERS Safety Report 6347400-0 (Version None)
Quarter: 2009Q3

REPORT INFORMATION
  Report Type: 
  Country: None (occurrence: None)
  Receive Date: 20090910
  Receipt Date: 20090831
  Transmission Date: 20100115
  Serious: Yes (Life-Threatening, Other)
  Sender: FDA-Public Use
  Company Number: US-JNJFOC-20090709817

PATIENT
  Sex: Female
  Weight: 81.65 kg

DRUGS (3)
  1. REMICADE [Suspect]
     Route: 042
  2. REMICADE [Suspect]
     Indication: ARTHRITIS
     Route: 042
  3. METHOTREXATE [Suspect]
     Indication: ARTHRITIS

REACTIONS (1)
  - NON-SMALL CELL LUNG CANCER METASTATIC [None]
